FAERS Safety Report 8776422 (Version 1)
Quarter: 2012Q4

REPORT INFORMATION
  Report Type: 
  Country: US (occurrence: US)
  Receive Date: 20120910
  Receipt Date: 20120910
  Transmission Date: 20130627
  Serious: Yes (Death)
  Sender: FDA-Public Use
  Company Number: PHEH2012US017528

PATIENT
  Age: 67 Year
  Sex: Male

DRUGS (7)
  1. TASIGNA [Suspect]
     Indication: NEOPLASM MALIGNANT
     Dosage: 300 mg, BID
     Route: 048
     Dates: start: 20120317, end: 20120818
  2. DILAUDID [Concomitant]
  3. FENTANYL [Concomitant]
  4. TEKTURNA [Concomitant]
  5. CYMBALTA [Concomitant]
  6. ZYPREXA [Concomitant]
  7. OXYBUTYNIN [Concomitant]

REACTIONS (1)
  - Neoplasm malignant [Fatal]
